FAERS Safety Report 7939405-0 (Version None)
Quarter: 2011Q4

REPORT INFORMATION
  Report Type: 
  Country: None (occurrence: None)
  Receive Date: 20111125
  Receipt Date: 20111115
  Transmission Date: 20120403
  Serious: Yes (Other)
  Sender: FDA-Public Use
  Company Number: US-ROCHE-792170

PATIENT
  Sex: Female
  Weight: 61.29 kg

DRUGS (2)
  1. ACCUTANE [Suspect]
     Route: 048
     Dates: start: 20010701, end: 20020114
  2. ACCUTANE [Suspect]
     Indication: ACNE
     Route: 048
     Dates: start: 20000424, end: 20001001

REACTIONS (6)
  - DEPRESSION [None]
  - COLITIS ULCERATIVE [None]
  - MIGRAINE [None]
  - INFLAMMATORY BOWEL DISEASE [None]
  - CROHN'S DISEASE [None]
  - ANXIETY [None]
